FAERS Safety Report 8342717-2 (Version None)
Quarter: 2012Q2

REPORT INFORMATION
  Report Type: 
  Country: None (occurrence: None)
  Receive Date: 20120503
  Receipt Date: 20091104
  Transmission Date: 20120825
  Serious: Yes (Hospitalization)
  Sender: FDA-Public Use
  Company Number: IT-007931

PATIENT
  Age: 67 Year
  Sex: Female

DRUGS (1)
  1. (CHLORAMBUCIL) [Suspect]
     Indication: CHRONIC LYMPHOCYTIC LEUKAEMIA
     Dosage: ORAL
     Route: 048
     Dates: start: 20091020

REACTIONS (3)
  - PNEUMONIA LEGIONELLA [None]
  - RESPIRATORY FAILURE [None]
  - SEPTIC SHOCK [None]
